FAERS Safety Report 19192440 (Version 4)
Quarter: 2021Q2

REPORT INFORMATION
  Report Type: Spontaneous
  Country: CA (occurrence: CA)
  Receive Date: 20210429
  Receipt Date: 20210629
  Transmission Date: 20210717
  Serious: Yes (Hospitalization)
  Sender: FDA-Public Use
  Company Number: CA-CELLTRION INC.-2020CA034162

PATIENT

DRUGS (6)
  1. INFLECTRA [Suspect]
     Active Substance: INFLIXIMAB-DYYB
     Indication: COLITIS ULCERATIVE
     Dosage: 500 MG AT WEEK 0, 2, 6 AND THEN EVERY 8 WEEKS
     Route: 042
     Dates: start: 20201201, end: 20201201
  2. INFLECTRA [Suspect]
     Active Substance: INFLIXIMAB-DYYB
     Dosage: 500 MG AT WEEK 0, 2, 6 AND THEN EVERY 8 WEEKS
     Route: 042
     Dates: start: 20210311, end: 20210311
  3. INFLECTRA [Suspect]
     Active Substance: INFLIXIMAB-DYYB
     Dosage: 900 MG, EVERY 6 WEEKS
     Route: 042
     Dates: start: 20210415, end: 20210415
  4. INFLECTRA [Suspect]
     Active Substance: INFLIXIMAB-DYYB
     Dosage: 500 MG EVERY 6 WEEKS
     Route: 042
     Dates: start: 20210527
  5. INFLECTRA [Suspect]
     Active Substance: INFLIXIMAB-DYYB
     Dosage: 500 MG AT WEEK 0, 2, 6 AND THEN EVERY 8 WEEKS
     Route: 042
     Dates: start: 20201201, end: 20210311
  6. INFLECTRA [Suspect]
     Active Substance: INFLIXIMAB-DYYB
     Dosage: 500 MG AT WEEK 0, 2, 6 AND THEN EVERY 8 WEEKS
     Route: 042
     Dates: start: 20210115, end: 20210115

REACTIONS (4)
  - Off label use [Unknown]
  - Off label use [Unknown]
  - Intentional product use issue [Unknown]
  - Condition aggravated [Recovering/Resolving]

NARRATIVE: CASE EVENT DATE: 20210311
